FAERS Safety Report 9411892 (Version 4)
Quarter: 2013Q3

REPORT INFORMATION
  Report Type: Report from Study
  Country: FR (occurrence: FR)
  Receive Date: 20130722
  Receipt Date: 20130807
  Transmission Date: 20140515
  Serious: Yes (Hospitalization, Other)
  Sender: FDA-Public Use
  Company Number: PHHO2013FR008313

PATIENT
  Age: 52 Year
  Sex: Male
  Weight: 58 kg

DRUGS (15)
  1. EVEROLIMUS [Suspect]
     Indication: LIVER TRANSPLANT
     Dosage: 1.5 MG, QD
     Dates: start: 20130517, end: 20130715
  2. MYFORTIC [Suspect]
     Indication: LIVER TRANSPLANT
     Dosage: 720 MG, QD
     Dates: start: 20130416, end: 20130519
  3. MYFORTIC [Suspect]
     Dosage: REDUCED DOSE
     Dates: start: 20130521
  4. MYFORTIC [Suspect]
     Dosage: UNK
     Dates: end: 20130729
  5. PROGRAF [Suspect]
     Indication: LIVER TRANSPLANT
     Dosage: 1 MG, QD
     Dates: start: 20130416, end: 20130516
  6. PROGRAF [Suspect]
     Dosage: REDUCE DOSE
     Dates: start: 20130518, end: 20130715
  7. PROGRAF [Suspect]
     Dosage: UNK
     Dates: start: 20130717, end: 20130801
  8. ADVAGRAF [Concomitant]
     Indication: LIVER TRANSPLANT
     Dosage: 0.5 MG, QD
     Dates: start: 20130801
  9. SOLUPRED [Concomitant]
     Indication: PROPHYLAXIS
     Dosage: 12.5 MG, QD
     Dates: start: 20130412
  10. LOXEN [Concomitant]
     Indication: HYPERTENSION
     Dosage: 160 MG, QD
     Dates: start: 20130411
  11. DELURSAN [Concomitant]
     Indication: PROPHYLAXIS
     Dosage: UNK
     Dates: start: 20130418
  12. MAGNESIUM [Concomitant]
     Indication: PROPHYLAXIS
     Dosage: UNK
     Dates: start: 20130508
  13. LAROXYL [Concomitant]
     Indication: NEURALGIA
     Dosage: 50 MG, QD
     Dates: start: 20130511
  14. LYRICA [Concomitant]
     Indication: NEURALGIA
     Dosage: 50 MG, BID
     Dates: start: 20130326
  15. LYRICA [Concomitant]
     Dosage: 100 MG, QD
     Dates: start: 20130511, end: 20130725

REACTIONS (2)
  - Pancytopenia [Recovered/Resolved]
  - Overdose [Recovered/Resolved]
